FAERS Safety Report 8105724-0 (Version None)
Quarter: 2012Q1

REPORT INFORMATION
  Report Type: 
  Country: None (occurrence: None)
  Receive Date: 20120201
  Receipt Date: 20120127
  Transmission Date: 20120608
  Serious: Yes (Hospitalization, Other)
  Sender: FDA-Public Use
  Company Number: DE-AMGEN-DEUSP2012000526

PATIENT
  Age: 82 Year
  Sex: Male

DRUGS (14)
  1. FENISTIL-RETARD [Concomitant]
     Dosage: UNK UNK, QD
  2. CALCIUM BETA [Concomitant]
     Dosage: UNK UNK, QD
  3. CALCIUM ACETATE [Concomitant]
     Dosage: 1000 MG, QD
     Route: 048
  4. FUROSEMIDE [Concomitant]
     Dosage: UNK UNK, BID
  5. TEGRETOL [Concomitant]
     Dosage: UNK UNK, QD
  6. PROLIA [Suspect]
     Indication: OSTEOPOROSIS
     Dosage: 60 MG, Q6MO
     Dates: start: 20101028
  7. LEVOTHYROXINE SODIUM [Concomitant]
     Dosage: UNK UNK, QD
  8. NITROGLYCERIN [Concomitant]
     Dosage: UNK UNK, PRN
     Route: 060
  9. TAMSULOSIN HEXAL [Concomitant]
     Dosage: 0.4 MG, QD
  10. PANTOPRAZOLE [Concomitant]
     Dosage: 20 MG, BID
  11. DIPYRONE TAB [Concomitant]
     Dosage: 500 MG, PRN
  12. DEKRISTOL [Concomitant]
     Dosage: 20000 IU, QWK
  13. PLAVIX [Concomitant]
     Dosage: UNK UNK, QD
  14. AMLODIPIN AWD [Concomitant]
     Dosage: 5 MG, BID

REACTIONS (7)
  - EPILEPSY [None]
  - CONVULSION [None]
  - URINARY TRACT INFECTION [None]
  - HYPOCALCAEMIA [None]
  - PYREXIA [None]
  - BLOOD CALCIUM DECREASED [None]
  - CEREBROVASCULAR ACCIDENT [None]
